FAERS Safety Report 23970939 (Version 1)
Quarter: 2024Q2

REPORT INFORMATION
  Report Type: Other
  Country: FR (occurrence: FR)
  Receive Date: 20240613
  Receipt Date: 20240613
  Transmission Date: 20240716
  Serious: Yes (Hospitalization)
  Sender: FDA-Public Use
  Company Number: FR-ALVOGEN-2024094822

PATIENT
  Age: 12 Year
  Sex: Female
  Weight: 42 kg

DRUGS (29)
  1. VORICONAZOLE [Suspect]
     Active Substance: VORICONAZOLE
     Indication: Trichosporon infection
     Dosage: STOPPED FOR 11 MONTHS
     Dates: start: 201709, end: 201903
  2. VORICONAZOLE [Suspect]
     Active Substance: VORICONAZOLE
     Indication: Trichosporon infection
     Dosage: RESUMED; 14 MG/KG/DAY
     Dates: start: 202001
  3. VORICONAZOLE [Suspect]
     Active Substance: VORICONAZOLE
     Indication: Trichosporon infection
     Dosage: 1000 MG PER DAY?IN PICU, APPROXIMATELY 9 TO 10 DAYS AFTER HSCT
     Dates: start: 2020
  4. VORICONAZOLE [Suspect]
     Active Substance: VORICONAZOLE
     Indication: Trichosporon infection
     Dosage: 800 MG PER DAY?APPROXIMATELY 11 TO 17 DAYS AFTER HSCT?DAY 1 OF PICU
     Dates: start: 2020
  5. VORICONAZOLE [Suspect]
     Active Substance: VORICONAZOLE
     Indication: Trichosporon infection
     Dosage: 400 MG PER DAY?RESTARTED ON D11, AFTER HSCT?DAY 11 OF PICU; INCREASED UNTIL 440 MG/12 H
     Dates: start: 2020
  6. VORICONAZOLE [Suspect]
     Active Substance: VORICONAZOLE
     Indication: Trichosporon infection
     Dosage: 600 MG PER DAY?APPROXIMATELY 20 DAYS AFTER HSCT
     Dates: start: 2020
  7. MIDAZOLAM [Suspect]
     Active Substance: MIDAZOLAM
     Indication: Sedation
     Dosage: HIGHER DOSES, UPON 150 G/KG/H
  8. MIDAZOLAM [Suspect]
     Active Substance: MIDAZOLAM
     Indication: Sedation
     Dosage: PROGRESSIVE DECREASE
  9. ISAVUCONAZOLE [Concomitant]
     Active Substance: ISAVUCONAZOLE
     Indication: Trichosporon infection
  10. POSACONAZOLE [Concomitant]
     Active Substance: POSACONAZOLE
     Indication: Trichosporon infection
  11. BUSULFAN [Concomitant]
     Active Substance: BUSULFAN
     Indication: Disseminated trichosporonosis
     Dates: start: 2020
  12. FLUDARABINE [Concomitant]
     Active Substance: FLUDARABINE PHOSPHATE
     Indication: Disseminated trichosporonosis
     Dates: start: 2020
  13. THYMOCYTE IMMUNE GLOBULIN NOS [Concomitant]
     Active Substance: THYMOCYTE IMMUNE GLOBULIN NOS
     Indication: Disseminated trichosporonosis
     Dates: start: 2020
  14. METHYLPREDNISOLONE [Concomitant]
     Active Substance: METHYLPREDNISOLONE
     Indication: Immune reconstitution inflammatory syndrome
  15. SUFENTANIL [Concomitant]
     Active Substance: SUFENTANIL
     Indication: Sedation
     Dosage: HIGHER DOSES UPON 1.4 G/KG/H
  16. SUFENTANIL [Concomitant]
     Active Substance: SUFENTANIL
     Indication: Sedation
     Dosage: PROGRESSIVE DECREASE
  17. MEROPENEM [Concomitant]
     Active Substance: MEROPENEM
     Indication: Product used for unknown indication
  18. ACYCLOVIR [Concomitant]
     Active Substance: ACYCLOVIR
     Indication: Product used for unknown indication
  19. MYCOPHENOLATE MOFETIL [Concomitant]
     Active Substance: MYCOPHENOLATE MOFETIL
     Indication: Product used for unknown indication
  20. MORPHINE [Concomitant]
     Active Substance: MORPHINE
     Indication: Product used for unknown indication
  21. MORPHINE [Concomitant]
     Active Substance: MORPHINE
     Indication: Product used for unknown indication
  22. PIPERACILLIN SODIUM\TAZOBACTAM SODIUM [Concomitant]
     Active Substance: PIPERACILLIN SODIUM\TAZOBACTAM SODIUM
     Indication: Product used for unknown indication
  23. TEICOPLANIN [Concomitant]
     Active Substance: TEICOPLANIN
     Indication: Product used for unknown indication
  24. NOREPINEPHRINE [Concomitant]
     Active Substance: NOREPINEPHRINE\NOREPINEPHRINE BITARTRATE
     Indication: Product used for unknown indication
  25. FUROSEMIDE [Concomitant]
     Active Substance: FUROSEMIDE
     Indication: Product used for unknown indication
  26. DEXMEDETOMIDINE [Concomitant]
     Active Substance: DEXMEDETOMIDINE
     Indication: Product used for unknown indication
  27. KETAMINE [Concomitant]
     Active Substance: KETAMINE
     Indication: Product used for unknown indication
  28. CHLORPROMAZINE [Concomitant]
     Active Substance: CHLORPROMAZINE
     Indication: Product used for unknown indication
  29. Sevo?urane [Concomitant]
     Indication: Sedation
     Route: 055

REACTIONS (6)
  - Cholestasis [Recovered/Resolved]
  - Hepatic cytolysis [Recovered/Resolved]
  - Hepatic enzyme increased [Recovered/Resolved]
  - Agitation [Recovered/Resolved]
  - Drug interaction [Unknown]
  - Off label use [Unknown]
